FAERS Safety Report 4894897-9 (Version None)
Quarter: 2006Q1

REPORT INFORMATION
  Report Type: 
  Country: None (occurrence: None)
  Receive Date: 20060130
  Receipt Date: 20050208
  Transmission Date: 20060701
  Serious: Yes (Hospitalization)
  Sender: FDA-Public Use
  Company Number: US-BRISTOL-MYERS SQUIBB COMPANY-12853180

PATIENT
  Age: 42 Year
  Sex: Male
  Weight: 94 kg

DRUGS (6)
  1. GLUCOPHAGE [Suspect]
     Indication: DIABETES MELLITUS
     Route: 048
  2. LIPITOR [Concomitant]
  3. GLUCOTROL [Concomitant]
  4. LOTENSIN [Concomitant]
  5. NORVASC [Concomitant]
  6. PRINIVIL [Concomitant]

REACTIONS (1)
  - LACTIC ACIDOSIS [None]
